FAERS Safety Report 4525615-1 (Version None)
Quarter: 2004Q4

REPORT INFORMATION
  Report Type: 
  Country: None (occurrence: None)
  Receive Date: 20041116
  Receipt Date: 20041011
  Transmission Date: 20050328
  Serious: No
  Sender: FDA-Public Use
  Company Number: S04-USA-06569-01

PATIENT
  Age: 77 Year
  Sex: Female

DRUGS (9)
  1. NAMENDA [Suspect]
     Indication: HEPATITIS C
     Dosage: 5 MG QD PO
     Route: 048
     Dates: start: 20040921, end: 20040927
  2. NAMENDA [Suspect]
     Indication: HEPATITIS C
     Dosage: 10 MG QD PO
     Route: 048
     Dates: start: 20040928, end: 20041004
  3. NAMENDA [Suspect]
     Indication: HEPATITIS C
     Dosage: 15 MG QD PO
     Route: 048
     Dates: start: 20041005
  4. DIAZEPAM [Concomitant]
  5. DYNACARE [Concomitant]
  6. ASPIRIN [Concomitant]
  7. CITRUCEL (METHYLCELLULOSE) [Concomitant]
  8. CALCIUM [Concomitant]
  9. MULTIVITAMIN [Concomitant]

REACTIONS (2)
  - FEELING ABNORMAL [None]
  - HEAD DISCOMFORT [None]
